FAERS Safety Report 11624147 (Version 1)
Quarter: 2015Q4

REPORT INFORMATION
  Report Type: Spontaneous
  Country: US (occurrence: US)
  Receive Date: 20151013
  Receipt Date: 20151013
  Transmission Date: 20160304
  Serious: No
  Sender: FDA-Public Use
  Company Number: US-JNJFOC-20150909741

PATIENT
  Age: 70 Year
  Sex: Female
  Weight: 58.97 kg

DRUGS (4)
  1. UNKNOWN MEDICATION [Concomitant]
     Active Substance: UNSPECIFIED INGREDIENT
     Indication: PRODUCT USED FOR UNKNOWN INDICATION
     Route: 065
  2. WOMENS ROGAINE UNSCENTED [Suspect]
     Active Substance: MINOXIDIL
     Indication: ALOPECIA
     Dosage: HALF CAP FULL, SECOND BATCH
     Route: 061
  3. WOMENS ROGAINE UNSCENTED [Suspect]
     Active Substance: MINOXIDIL
     Indication: ALOPECIA
     Dosage: HALF CAP FULL, FIRST BATCH
     Route: 061
  4. PROBIOTICS [Concomitant]
     Active Substance: PROBIOTICS NOS
     Indication: LACTOSE INTOLERANCE
     Dosage: USING SINCE FEW MONTHS
     Route: 065

REACTIONS (2)
  - Alopecia [Recovering/Resolving]
  - Inappropriate schedule of drug administration [Recovering/Resolving]
